FAERS Safety Report 7328127-5 (Version None)
Quarter: 2011Q1

REPORT INFORMATION
  Report Type: 
  Country: None (occurrence: None)
  Receive Date: 20110303
  Receipt Date: 20110218
  Transmission Date: 20110831
  Serious: Yes (Other)
  Sender: FDA-Public Use
  Company Number: PHHY2010BR44636

PATIENT
  Sex: Female

DRUGS (1)
  1. DIOVAN AMLO FIX [Suspect]
     Indication: HYPERTENSION
     Dosage: 160/5 MG

REACTIONS (4)
  - ECLAMPSIA [None]
  - BLOOD PRESSURE INADEQUATELY CONTROLLED [None]
  - HYPERTENSION [None]
  - DRUG EXPOSURE DURING PREGNANCY [None]
